FAERS Safety Report 16325124 (Version 1)
Quarter: 2019Q2

REPORT INFORMATION
  Report Type: Spontaneous
  Country: US (occurrence: US)
  Receive Date: 20190517
  Receipt Date: 20190517
  Transmission Date: 20190711
  Serious: No
  Sender: FDA-Public Use
  Company Number: US-009507513-1905USA006237

PATIENT
  Age: 24 Year
  Sex: Female
  Weight: 68.03 kg

DRUGS (2)
  1. NEXPLANON [Suspect]
     Active Substance: ETONOGESTREL
     Dosage: 1 DOSAGE FORM, INTO HER LEFT ARM
     Route: 059
     Dates: start: 20190509, end: 2019
  2. NEXPLANON [Suspect]
     Active Substance: ETONOGESTREL
     Dosage: 1 UNK
     Route: 059
     Dates: start: 2019

REACTIONS (4)
  - Needle issue [Unknown]
  - Device difficult to use [Recovered/Resolved]
  - Product quality issue [Unknown]
  - Device expulsion [Recovered/Resolved]

NARRATIVE: CASE EVENT DATE: 20190509
